FAERS Safety Report 11465034 (Version 1)
Quarter: 2015Q3

REPORT INFORMATION
  Report Type: Spontaneous
  Country: KR (occurrence: KR)
  Receive Date: 20150907
  Receipt Date: 20150907
  Transmission Date: 20151125
  Serious: Yes (Death, Hospitalization, Other)
  Sender: FDA-Public Use
  Company Number: KR-ALEMBIC PHARMACUETICALS LIMITED-2015SCAL000567

PATIENT
  Age: 73 Year
  Sex: Female

DRUGS (1)
  1. LAMOTRIGINE. [Suspect]
     Active Substance: LAMOTRIGINE
     Indication: PRODUCT USED FOR UNKNOWN INDICATION
     Dosage: UNK

REACTIONS (7)
  - Haemorrhage intracranial [Unknown]
  - Pneumonia [Unknown]
  - Pneumonia aspiration [Fatal]
  - Renal injury [Unknown]
  - Mental status changes [Unknown]
  - Liver injury [Unknown]
  - Toxic epidermal necrolysis [Unknown]
